FAERS Safety Report 24701118 (Version 1)
Quarter: 2024Q4

REPORT INFORMATION
  Report Type: Spontaneous
  Country: CN (occurrence: CN)
  Receive Date: 20241205
  Receipt Date: 20241205
  Transmission Date: 20250114
  Serious: Yes (Hospitalization)
  Sender: ROCHE
  Company Number: CN-BoehringerIngelheim-2024-BI-065433

PATIENT
  Age: 64 Year
  Sex: Male
  Weight: 75.0 kg

DRUGS (14)
  1. ALTEPLASE [Suspect]
     Active Substance: ALTEPLASE
     Indication: Cerebral infarction
     Route: 042
     Dates: start: 20241027, end: 20241027
  2. ALTEPLASE [Suspect]
     Active Substance: ALTEPLASE
     Indication: Electrolyte imbalance
  3. ALTEPLASE [Suspect]
     Active Substance: ALTEPLASE
     Indication: Type 2 diabetes mellitus
  4. ALTEPLASE [Suspect]
     Active Substance: ALTEPLASE
     Indication: Febrile infection
  5. ALTEPLASE [Suspect]
     Active Substance: ALTEPLASE
     Indication: Cerebral artery stenosis
  6. ALTEPLASE [Suspect]
     Active Substance: ALTEPLASE
     Indication: Renal cyst
  7. ALTEPLASE [Suspect]
     Active Substance: ALTEPLASE
     Indication: Nephrolithiasis
  8. ALTEPLASE [Suspect]
     Active Substance: ALTEPLASE
     Indication: Benign prostatic hyperplasia
  9. ALTEPLASE [Suspect]
     Active Substance: ALTEPLASE
     Indication: Calculus prostatic
  10. ALTEPLASE [Suspect]
     Active Substance: ALTEPLASE
     Indication: Brain neoplasm
  11. ALTEPLASE [Suspect]
     Active Substance: ALTEPLASE
     Indication: Cerebral haemorrhage
  12. ALTEPLASE [Suspect]
     Active Substance: ALTEPLASE
     Indication: Hepatic failure
  13. ALTEPLASE [Suspect]
     Active Substance: ALTEPLASE
     Indication: Drug therapy
  14. SODIUM CHLORIDE [Concomitant]
     Active Substance: SODIUM CHLORIDE
     Route: 042
     Dates: start: 20241027, end: 20241028

REACTIONS (2)
  - Platelet count decreased [Recovering/Resolving]
  - Off label use [Unknown]

NARRATIVE: CASE EVENT DATE: 20241028
